FAERS Safety Report 7141968-2 (Version None)
Quarter: 2010Q4

REPORT INFORMATION
  Report Type: 
  Country: None (occurrence: None)
  Receive Date: 20101207
  Receipt Date: 20101124
  Transmission Date: 20110411
  Serious: Yes (Hospitalization)
  Sender: FDA-Public Use
  Company Number: A0803366A

PATIENT
  Age: 43 Year
  Sex: Male
  Weight: 143.2 kg

DRUGS (6)
  1. AVANDIA [Suspect]
     Indication: DIABETES MELLITUS
     Dosage: 8MG PER DAY
     Route: 048
     Dates: end: 20060801
  2. LIPITOR [Concomitant]
  3. LOTREL [Concomitant]
  4. TRICOR [Concomitant]
  5. NOVOLOG [Concomitant]
  6. METFORMIN [Concomitant]

REACTIONS (3)
  - CORONARY ARTERY DISEASE [None]
  - HAEMOTHORAX [None]
  - MYOCARDIAL INFARCTION [None]
